FAERS Safety Report 9276492 (Version 2)
Quarter: 2013Q2

REPORT INFORMATION
  Report Type: Spontaneous
  Country: US (occurrence: US)
  Receive Date: 20130507
  Receipt Date: 20130520
  Transmission Date: 20140414
  Serious: Yes (Other)
  Sender: FDA-Public Use
  Company Number: US-JNJFOC-20130413868

PATIENT
  Age: 81 Year
  Sex: Male
  Weight: 105.24 kg

DRUGS (1)
  1. LEVAQUIN [Suspect]
     Indication: URINARY TRACT INFECTION
     Route: 048
     Dates: start: 20130417, end: 20130419

REACTIONS (1)
  - Arthralgia [Not Recovered/Not Resolved]
